FAERS Safety Report 24250875 (Version 1)
Quarter: 2024Q3

REPORT INFORMATION
  Report Type: Spontaneous
  Country: CA (occurrence: CA)
  Receive Date: 20240826
  Receipt Date: 20240826
  Transmission Date: 20241017
  Serious: Yes (Death, Life-Threatening, Hospitalization, Disabling, Other)
  Sender: DAIICHI
  Company Number: CA-AstraZeneca-2024A189622

PATIENT
  Sex: Female

DRUGS (1)
  1. TRASTUZUMAB DERUXTECAN [Suspect]
     Active Substance: TRASTUZUMAB DERUXTECAN
     Indication: HER2 positive breast cancer
     Dosage: 308 MG, ONCE EVERY 3 WK
     Route: 042

REACTIONS (7)
  - Anticoagulation drug level below therapeutic [Fatal]
  - Atrial fibrillation [Fatal]
  - Cerebellar infarction [Fatal]
  - Death [Fatal]
  - Disease complication [Fatal]
  - Metastases to central nervous system [Fatal]
  - Mitral valve replacement [Fatal]
